FAERS Safety Report 7505937-2 (Version None)
Quarter: 2011Q2

REPORT INFORMATION
  Report Type: 
  Country: None (occurrence: None)
  Receive Date: 20110526
  Receipt Date: 20110520
  Transmission Date: 20111010
  Serious: Yes (Hospitalization)
  Sender: FDA-Public Use
  Company Number: US-ROCHE-755859

PATIENT
  Sex: Female
  Weight: 70.3 kg

DRUGS (11)
  1. MELOXICAM [Concomitant]
  2. MORPHINE [Concomitant]
     Indication: PAIN
     Dosage: DRUG REPORTED AS: MORPHINE EXTENDED RELEASE
  3. CYMBALTA [Concomitant]
     Indication: FIBROMYALGIA
     Route: 048
     Dates: start: 20090507
  4. ACETAMINOPHEN [Concomitant]
  5. VICODIN [Concomitant]
     Indication: PAIN
     Dosage: DOSE: 5-500 1 TWICE DAILY, OTHER INDICATION RHEUMATOID ARTHRITIS
     Dates: start: 20090507
  6. XANAX [Concomitant]
     Indication: FIBROMYALGIA
     Route: 048
     Dates: start: 20090507
  7. ACTEMRA [Suspect]
     Dosage: FORM: INFUSION
     Route: 042
     Dates: start: 20101215, end: 20101215
  8. PARAFON FORTE [Concomitant]
     Indication: MUSCLE SPASMS
     Dosage: OTHER INDICATION: FIBROMYALGIA
     Route: 048
     Dates: start: 20090507
  9. ACTEMRA [Suspect]
     Route: 042
     Dates: start: 20110119, end: 20110119
  10. ACTEMRA [Suspect]
     Route: 042
     Dates: end: 20110128
  11. LYRICA [Concomitant]
     Indication: FIBROMYALGIA

REACTIONS (6)
  - FATIGUE [None]
  - CHEST PAIN [None]
  - DYSPNOEA [None]
  - HEADACHE [None]
  - DIZZINESS [None]
  - PARAESTHESIA [None]
